FAERS Safety Report 9164476 (Version 1)
Quarter: 2013Q1

REPORT INFORMATION
  Report Type: Spontaneous
  Country: SK (occurrence: None)
  Receive Date: 20130226
  Receipt Date: 20130226
  Transmission Date: 20140127
  Serious: Yes (Other)
  Sender: FDA-Public Use
  Company Number: 2013VX000512

PATIENT
  Age: 66 Year
  Sex: Female

DRUGS (2)
  1. MESTINON [Suspect]
     Indication: SPINAL MUSCULAR ATROPHY
  2. MESTINON [Suspect]
     Indication: GAIT DISTURBANCE

REACTIONS (7)
  - Drug ineffective [None]
  - Abdominal pain upper [None]
  - Myalgia [None]
  - Increased bronchial secretion [None]
  - Micturition urgency [None]
  - Back pain [None]
  - Chest pain [None]
